FAERS Safety Report 18352195 (Version 1)
Quarter: 2020Q4

REPORT INFORMATION
  Report Type: Spontaneous
  Country: US (occurrence: US)
  Receive Date: 20201006
  Receipt Date: 20201006
  Transmission Date: 20210114
  Serious: No
  Sender: FDA-Public Use
  Company Number: US-ALLERGAN-2027979US

PATIENT
  Age: 53 Year
  Sex: Female

DRUGS (4)
  1. LINZESS [Suspect]
     Active Substance: LINACLOTIDE
     Indication: CONSTIPATION
     Dosage: OPENING 145 ?G AND DUMPING ABOUT HALF OF THE MEDICINE
     Route: 048
  2. LINZESS [Suspect]
     Active Substance: LINACLOTIDE
     Dosage: 290 ?G
     Route: 048
  3. LINZESS [Suspect]
     Active Substance: LINACLOTIDE
     Dosage: 145 ?G, QD
     Route: 048
  4. LINZESS [Suspect]
     Active Substance: LINACLOTIDE
     Dosage: 72 ?G
     Route: 048

REACTIONS (11)
  - Housebound [Unknown]
  - Off label use [Unknown]
  - Diarrhoea [Unknown]
  - Constipation [Unknown]
  - Drug ineffective [Unknown]
  - Abdominal distension [Unknown]
  - Intentional product misuse [Unknown]
  - Therapy interrupted [Unknown]
  - Therapeutic product effect variable [Unknown]
  - Bowel movement irregularity [Unknown]
  - Intentional dose omission [Unknown]
